FAERS Safety Report 6140913-6 (Version None)
Quarter: 2009Q2

REPORT INFORMATION
  Report Type: 
  Country: None (occurrence: None)
  Receive Date: 20090402
  Receipt Date: 20080320
  Transmission Date: 20091009
  Serious: No
  Sender: FDA-Public Use
  Company Number: US-KINGPHARMUSA00001-K200800344

PATIENT
  Sex: Female
  Weight: 71.655 kg

DRUGS (2)
  1. SKELAXIN [Suspect]
     Indication: BACK INJURY
     Dosage: 800 MG, QID
     Route: 048
     Dates: start: 20080317
  2. UNSPECIFIED MEDICATION [Concomitant]
     Dosage: UNK, UNK

REACTIONS (6)
  - DYSARTHRIA [None]
  - FEELING ABNORMAL [None]
  - IRRITABILITY [None]
  - NAUSEA [None]
  - PRURITUS [None]
  - SOMNOLENCE [None]
